FAERS Safety Report 25353783 (Version 2)
Quarter: 2025Q3

REPORT INFORMATION
  Report Type: Spontaneous
  Country: EU (occurrence: EU)
  Receive Date: 20250523
  Receipt Date: 20250826
  Transmission Date: 20251020
  Serious: Yes (Hospitalization, Other)
  Sender: JOHNSON AND JOHNSON
  Company Number: EU-JNJFOC-20250521684

PATIENT
  Age: 30 Year
  Sex: Male

DRUGS (3)
  1. SIMPONI [Suspect]
     Active Substance: GOLIMUMAB
     Indication: Colitis ulcerative
     Route: 065
  2. SIMPONI [Suspect]
     Active Substance: GOLIMUMAB
  3. SIMPONI [Suspect]
     Active Substance: GOLIMUMAB

REACTIONS (9)
  - Pancreatitis [Unknown]
  - IgA nephropathy [Unknown]
  - Anti-neutrophil cytoplasmic antibody positive vasculitis [Unknown]
  - Colitis ulcerative [Unknown]
  - Chronic kidney disease [Unknown]
  - Renal impairment [Unknown]
  - Inflammatory bowel disease [Unknown]
  - Tonsillitis [Unknown]
  - Infection [Unknown]

NARRATIVE: CASE EVENT DATE: 20250101
